FAERS Safety Report 9376528 (Version 1)
Quarter: 2013Q3

REPORT INFORMATION
  Report Type: Spontaneous
  Country: US (occurrence: US)
  Receive Date: 20130701
  Receipt Date: 20130701
  Transmission Date: 20140515
  Serious: Yes (Hospitalization)
  Sender: FDA-Public Use
  Company Number: US-ROCHE-1239592

PATIENT
  Age: 57 Year
  Sex: Male

DRUGS (9)
  1. ZELBORAF [Suspect]
     Indication: METASTATIC MALIGNANT MELANOMA
     Route: 048
     Dates: start: 20121101, end: 201304
  2. ZELBORAF [Suspect]
     Route: 065
     Dates: start: 20130620
  3. TEMODAR [Suspect]
     Indication: CHEMOTHERAPY
     Route: 065
  4. BYSTOLIC [Concomitant]
     Indication: BLOOD PRESSURE
     Route: 048
  5. ASPIRIN [Concomitant]
     Route: 048
  6. CRESTOR [Concomitant]
     Route: 048
  7. KEPPRA [Concomitant]
     Indication: EPILEPSY
     Route: 048
  8. TOPAMAX [Concomitant]
     Indication: EPILEPSY
     Route: 048
  9. OMEPRAZOLE [Concomitant]
     Route: 048

REACTIONS (13)
  - Loss of consciousness [Recovered/Resolved with Sequelae]
  - Bone neoplasm [Recovered/Resolved with Sequelae]
  - Restless legs syndrome [Not Recovered/Not Resolved]
  - Pain in extremity [Not Recovered/Not Resolved]
  - Vomiting [Not Recovered/Not Resolved]
  - Decreased appetite [Not Recovered/Not Resolved]
  - Weight decreased [Not Recovered/Not Resolved]
  - White blood cell disorder [Not Recovered/Not Resolved]
  - Red blood cell abnormality [Not Recovered/Not Resolved]
  - Platelet count abnormal [Not Recovered/Not Resolved]
  - Haematocrit abnormal [Not Recovered/Not Resolved]
  - Haemoglobin abnormal [Not Recovered/Not Resolved]
  - Anxiety [Unknown]
